FAERS Safety Report 21698673 (Version 2)
Quarter: 2023Q2

REPORT INFORMATION
  Report Type: Spontaneous
  Country: US (occurrence: US)
  Receive Date: 20221208
  Receipt Date: 20230418
  Transmission Date: 20230721
  Serious: No
  Sender: FDA-Public Use
  Company Number: US-AMGEN-USASP2022211939

PATIENT
  Sex: Male

DRUGS (1)
  1. OTEZLA [Suspect]
     Active Substance: APREMILAST
     Indication: Psoriasis
     Dosage: 30 MILLIGRAM, BID
     Route: 048
     Dates: start: 20181120

REACTIONS (6)
  - Therapy non-responder [Unknown]
  - Infection [Unknown]
  - Pyrexia [Unknown]
  - Product dose omission issue [Unknown]
  - Psoriasis [Unknown]
  - Headache [Unknown]
